FAERS Safety Report 6915295-X (Version None)
Quarter: 2010Q3

REPORT INFORMATION
  Report Type: 
  Country: None (occurrence: None)
  Receive Date: 20100809
  Receipt Date: 20091022
  Transmission Date: 20110219
  Serious: No
  Sender: FDA-Public Use
  Company Number: US-ABBOTT-09P-163-0604953-00

PATIENT
  Sex: Male

DRUGS (3)
  1. DEPAKOTE ER [Suspect]
     Indication: CONVULSION
     Route: 048
     Dates: start: 20090127, end: 20090616
  2. DEPAKOTE [Suspect]
     Indication: CONVULSION
     Route: 048
     Dates: end: 20090126
  3. DEPAKOTE [Suspect]
     Route: 048
     Dates: start: 20090617

REACTIONS (3)
  - CONVULSION [None]
  - EPISTAXIS [None]
  - FATIGUE [None]
